FAERS Safety Report 12990940 (Version 1)
Quarter: 2016Q4

REPORT INFORMATION
  Report Type: Spontaneous
  Country: US (occurrence: US)
  Receive Date: 20161130
  Receipt Date: 20161130
  Transmission Date: 20170207
  Serious: Yes (Death)
  Sender: FDA-Public Use
  Company Number: None

PATIENT
  Age: 47 Year
  Sex: Female

DRUGS (6)
  1. ENTECAVIR. [Suspect]
     Active Substance: ENTECAVIR
     Indication: LEUKAEMIA
     Route: 048
     Dates: start: 20161008
  2. AUGMENTIN [Concomitant]
     Active Substance: AMOXICILLIN\CLAVULANATE POTASSIUM
  3. LAMIVUDINE. [Concomitant]
     Active Substance: LAMIVUDINE
  4. CIPROFLOXACID [Concomitant]
  5. CEPHALEXIN. [Concomitant]
     Active Substance: CEPHALEXIN
  6. IBUPROFEN. [Concomitant]
     Active Substance: IBUPROFEN

REACTIONS (1)
  - Death [None]

NARRATIVE: CASE EVENT DATE: 20161129
